FAERS Safety Report 7500685-7 (Version None)
Quarter: 2011Q2

REPORT INFORMATION
  Report Type: 
  Country: None (occurrence: None)
  Receive Date: 20110524
  Receipt Date: 20110518
  Transmission Date: 20111010
  Serious: Yes (Other)
  Sender: FDA-Public Use
  Company Number: US-MERCK-1105USA01982

PATIENT
  Age: 61 Year
  Sex: Male

DRUGS (8)
  1. VYTORIN [Suspect]
     Indication: BLOOD CHOLESTEROL
     Route: 048
     Dates: start: 20080101, end: 20110511
  2. ATENOLOL [Concomitant]
     Route: 065
  3. COLESTID [Concomitant]
     Route: 065
  4. JANUVIA [Concomitant]
     Route: 065
  5. LIPITOR [Concomitant]
     Route: 065
  6. METFORMIN [Concomitant]
     Route: 065
  7. ASPIRIN [Concomitant]
     Route: 065
  8. PLAVIX [Concomitant]
     Route: 065

REACTIONS (4)
  - CARDIAC DISORDER [None]
  - MUSCLE SPASMS [None]
  - ASTHENIA [None]
  - MUSCULAR WEAKNESS [None]
